FAERS Safety Report 21993741 (Version 12)
Quarter: 2023Q2

REPORT INFORMATION
  Report Type: Report from Study
  Country: US (occurrence: None)
  Receive Date: 20230215
  Receipt Date: 20230425
  Transmission Date: 20230721
  Serious: Yes (Hospitalization)
  Sender: FDA-Public Use
  Company Number: US-Eisai Medical Research-EC-2023-133975

PATIENT
  Age: 55 Year
  Sex: Male
  Weight: 131.7 kg

DRUGS (6)
  1. LENVATINIB [Suspect]
     Active Substance: LENVATINIB
     Indication: Clear cell renal cell carcinoma
     Route: 048
     Dates: start: 20230116, end: 20230116
  2. LENVATINIB [Suspect]
     Active Substance: LENVATINIB
     Route: 048
     Dates: start: 20230228
  3. QUAVONLIMAB [Suspect]
     Active Substance: QUAVONLIMAB
     Indication: Clear cell renal cell carcinoma
     Dosage: MK 1308A (QUAVONLIMAB (MK-1308) 25 MG +  PEMBROLIZUMAB (MK-3475) 400 MG
     Route: 042
     Dates: start: 20230116, end: 20230116
  4. PEMBROLIZUMAB [Suspect]
     Active Substance: PEMBROLIZUMAB
     Dosage: MK 1308A (QUAVONLIMAB (MK-1308) 25 MG +  PEMBROLIZUMAB (MK-3475) 400 MG
     Route: 042
     Dates: start: 20230228
  5. ZESTRIL [Concomitant]
     Active Substance: LISINOPRIL
     Dates: start: 201701, end: 20230206
  6. VIAGRA [Concomitant]
     Active Substance: SILDENAFIL CITRATE
     Dates: start: 202109, end: 20230123

REACTIONS (1)
  - Hyperthyroidism [Recovered/Resolved]

NARRATIVE: CASE EVENT DATE: 20230206
